FAERS Safety Report 5521381-1 (Version None)
Quarter: 2007Q4

REPORT INFORMATION
  Report Type: 
  Country: None (occurrence: None)
  Receive Date: 20071119
  Receipt Date: 20071105
  Transmission Date: 20080405
  Serious: Yes (Hospitalization)
  Sender: FDA-Public Use
  Company Number: GB-BAUSCH-2007BL004022

PATIENT
  Age: 30 Year
  Sex: Female
  Weight: 72 kg

DRUGS (12)
  1. GENTAMICIN SULFATE [Suspect]
     Route: 042
  2. CHLORPHENIRAMINE TAB [Suspect]
     Indication: PRURITUS
     Route: 042
  3. METRONIDAZOL ^ALPHARMA^ [Suspect]
     Route: 042
  4. MORPHINE [Suspect]
     Indication: PAIN
     Route: 048
  5. PARACETAMOL [Suspect]
     Indication: PAIN
  6. COMPOUND SODIUM LACTATE INJECTION [Concomitant]
     Route: 042
  7. CYCLOSPORINE [Concomitant]
     Indication: PSORIASIS
     Route: 048
  8. DEXAMETHASONE [Concomitant]
     Indication: MATERNAL THERAPY TO ENHANCE FOETAL LUNG MATURITY
  9. PENICILLIN [Concomitant]
     Indication: DRUG USE FOR UNKNOWN INDICATION
  10. ERYTHROMYCIN [Concomitant]
     Indication: DRUG USE FOR UNKNOWN INDICATION
  11. CEPHALOSPORIN C [Concomitant]
     Indication: DRUG USE FOR UNKNOWN INDICATION
  12. ANTIINFLAMMATORY/ANTIRHEUMATIC NON-STEROIDS [Concomitant]
     Indication: DRUG USE FOR UNKNOWN INDICATION

REACTIONS (16)
  - C-REACTIVE PROTEIN INCREASED [None]
  - CAESAREAN SECTION [None]
  - CALCIUM IONISED INCREASED [None]
  - CONDITION AGGRAVATED [None]
  - DRUG EXPOSURE DURING PREGNANCY [None]
  - FACE OEDEMA [None]
  - GENERALISED OEDEMA [None]
  - HAEMOGLOBIN DECREASED [None]
  - HEART RATE INCREASED [None]
  - HYPOPROTEINAEMIA [None]
  - INFLAMMATION [None]
  - LARYNGEAL OEDEMA [None]
  - NEUTROPHILIA [None]
  - PSORIASIS [None]
  - PYREXIA [None]
  - SOMNOLENCE [None]
